FAERS Safety Report 4424997-9 (Version None)
Quarter: 2004Q3

REPORT INFORMATION
  Report Type: 
  Country: None (occurrence: None)
  Receive Date: 20040811
  Receipt Date: 20040811
  Transmission Date: 20050211
  Serious: Yes (Other)
  Sender: FDA-Public Use
  Company Number: None

PATIENT
  Age: 77 Year
  Sex: Female
  Weight: 64.8644 kg

DRUGS (2)
  1. LOVENOX [Suspect]
     Indication: DEEP VENOUS THROMBOSIS PROPHYLAXIS
     Dosage: 60 MG Q12 SC
     Route: 058
     Dates: start: 20040808, end: 20040810
  2. KCL TAB [Suspect]
     Indication: ELECTROLYTE SUBSTITUTION THERAPY
     Dosage: 10 MEQ Q12 ORAL
     Route: 048
     Dates: start: 20040808, end: 20040810

REACTIONS (5)
  - ANGIONEUROTIC OEDEMA [None]
  - RASH GENERALISED [None]
  - RASH PRURITIC [None]
  - SWELLING FACE [None]
  - URTICARIA [None]
